FAERS Safety Report 8161647-2 (Version None)
Quarter: 2012Q1

REPORT INFORMATION
  Report Type: 
  Country: None (occurrence: None)
  Receive Date: 20120224
  Receipt Date: 20120214
  Transmission Date: 20120608
  Serious: Yes (Hospitalization)
  Sender: FDA-Public Use
  Company Number: JP-PFIZER INC-2012045663

PATIENT
  Age: 80 Year
  Sex: Male

DRUGS (4)
  1. MIGLITOL [Suspect]
     Indication: TYPE 2 DIABETES MELLITUS
     Dosage: 50 MG, 2X/DAY
     Route: 048
     Dates: start: 20120205, end: 20120208
  2. GLIMICRON [Concomitant]
  3. LOSARTAN POTASSIUM [Concomitant]
  4. OMEPRAZOLE [Concomitant]

REACTIONS (6)
  - DERMATITIS EXFOLIATIVE [None]
  - NASAL CONGESTION [None]
  - NASOPHARYNGITIS [None]
  - DRY THROAT [None]
  - ORAL DISCOMFORT [None]
  - ORAL DISORDER [None]
